FAERS Safety Report 20841175 (Version 2)
Quarter: 2023Q1

REPORT INFORMATION
  Report Type: Report from Study
  Country: IT (occurrence: IT)
  Receive Date: 20220517
  Receipt Date: 20230302
  Transmission Date: 20230418
  Serious: Yes (Hospitalization, Other)
  Sender: FDA-Public Use
  Company Number: IT-002147023-NVSC2022IT105499

PATIENT

DRUGS (3)
  1. RUXOLITINIB [Suspect]
     Active Substance: RUXOLITINIB
     Indication: Myelofibrosis
     Dosage: 5 MG, BID
     Route: 048
     Dates: start: 20180508, end: 20220422
  2. RUXOLITINIB [Suspect]
     Active Substance: RUXOLITINIB
     Dosage: 5 MG, BID
     Route: 048
     Dates: start: 20190625
  3. ASPIRIN [Concomitant]
     Active Substance: ASPIRIN
     Indication: Antiplatelet therapy
     Dosage: 100 MG
     Route: 065
     Dates: start: 201805

REACTIONS (8)
  - Anaemia [Recovered/Resolved]
  - Diarrhoea [Recovered/Resolved]
  - Melaena [Recovered/Resolved]
  - Gastroenteritis [Recovered/Resolved]
  - Gastrointestinal haemorrhage [Recovered/Resolved]
  - Encephalitis [Not Recovered/Not Resolved]
  - SARS-CoV-2 test positive [Recovered/Resolved]
  - Vomiting [Recovered/Resolved]

NARRATIVE: CASE EVENT DATE: 20220415
